FAERS Safety Report 10329737 (Version 4)
Quarter: 2015Q1

REPORT INFORMATION
  Report Type: Spontaneous
  Country: US (occurrence: US)
  Receive Date: 20140721
  Receipt Date: 20150206
  Transmission Date: 20150720
  Serious: Yes (Other)
  Sender: FDA-Public Use
  Company Number: US-ROXANE LABORATORIES, INC.-2014-RO-00863RO

PATIENT
  Age: 27 Year
  Sex: Female
  Weight: 54 kg

DRUGS (9)
  1. NIFEREX [Concomitant]
     Active Substance: IRON\POLYSACCHARIDES
     Indication: IRON DEFICIENCY ANAEMIA
     Dosage: 300 MG
     Route: 048
     Dates: start: 20131230
  2. MYCOPHENOLATE MOFETIL. [Suspect]
     Active Substance: MYCOPHENOLATE MOFETIL
     Indication: IMMUNOSUPPRESSANT DRUG THERAPY
     Dosage: 1000 MG
     Route: 048
     Dates: start: 20131223, end: 20140520
  3. AZATHIOPRINE. [Concomitant]
     Active Substance: AZATHIOPRINE
     Indication: IMMUNOSUPPRESSANT DRUG THERAPY
     Dosage: 50 MG
     Route: 048
     Dates: start: 20140529
  4. VALGANCICLOVIR [Concomitant]
     Active Substance: VALGANCICLOVIR
     Indication: PROPHYLAXIS
     Dosage: 1800 MG
     Route: 048
     Dates: start: 20131230
  5. TACROLIMUS. [Concomitant]
     Active Substance: TACROLIMUS
     Indication: IMMUNOSUPPRESSANT DRUG THERAPY
     Dosage: 8 MG
     Route: 048
     Dates: start: 20131220
  6. SULFAMETHOXAZOLE/TMP [Concomitant]
     Indication: PROPHYLAXIS
     Route: 048
     Dates: start: 20131230
  7. K-PHOS NEUTROL [Concomitant]
     Indication: BLOOD PHOSPHORUS DECREASED
     Dosage: 500 MG
     Route: 048
     Dates: start: 20131230
  8. PANTOPRAZOLE [Concomitant]
     Active Substance: PANTOPRAZOLE SODIUM
     Indication: GASTROOESOPHAGEAL REFLUX DISEASE
     Dosage: 40 MG
     Route: 048
     Dates: start: 20131230
  9. PREDNISONE. [Concomitant]
     Active Substance: PREDNISONE
     Indication: IMMUNOSUPPRESSANT DRUG THERAPY
     Dosage: 5 MG
     Route: 048
     Dates: start: 20131225

REACTIONS (1)
  - Abortion spontaneous [Unknown]

NARRATIVE: CASE EVENT DATE: 20140626
